FAERS Safety Report 5776621-0 (Version None)
Quarter: 2008Q2

REPORT INFORMATION
  Report Type: 
  Country: None (occurrence: None)
  Receive Date: 20080618
  Receipt Date: 20080617
  Transmission Date: 20081010
  Serious: Yes (Other)
  Sender: FDA-Public Use
  Company Number: US-BRISTOL-MYERS SQUIBB COMPANY-14231872

PATIENT
  Sex: Male

DRUGS (1)
  1. COUMADIN [Suspect]
     Dates: start: 19960101

REACTIONS (2)
  - NEOPLASM MALIGNANT [None]
  - SPINAL FRACTURE [None]
